FAERS Safety Report 24167980 (Version 1)
Quarter: 2024Q3

REPORT INFORMATION
  Report Type: Report from Study
  Country: GB (occurrence: GB)
  Receive Date: 20240802
  Receipt Date: 20240802
  Transmission Date: 20241017
  Serious: Yes (Hospitalization)
  Sender: IPSEN
  Company Number: GB-IPSEN Group, Research and Development-2022-24221

PATIENT
  Age: 75 Year
  Sex: Female

DRUGS (2)
  1. LANREOTIDE ACETATE [Suspect]
     Active Substance: LANREOTIDE ACETATE
     Indication: Neuroendocrine tumour
     Dosage: STRENGTH: 120MG/0.5ML
     Route: 058
  2. LANREOTIDE ACETATE [Suspect]
     Active Substance: LANREOTIDE ACETATE
     Indication: Off label use
     Route: 065
     Dates: start: 20240627

REACTIONS (8)
  - Chest pain [Unknown]
  - Headache [Unknown]
  - Hypertension [Unknown]
  - Musculoskeletal pain [Unknown]
  - Fatigue [Unknown]
  - Diarrhoea [Unknown]
  - Hypertension [Unknown]
  - Off label use [Unknown]

NARRATIVE: CASE EVENT DATE: 20220821
